FAERS Safety Report 6770534-3 (Version None)
Quarter: 2010Q2

REPORT INFORMATION
  Report Type: 
  Country: None (occurrence: None)
  Receive Date: 20100615
  Receipt Date: 20100609
  Transmission Date: 20101027
  Serious: Yes (Other)
  Sender: FDA-Public Use
  Company Number: US-BAYER-200927526NA

PATIENT
  Age: 64 Year
  Sex: Male

DRUGS (22)
  1. MAGNEVIST [Suspect]
     Indication: NUCLEAR MAGNETIC RESONANCE IMAGING
  2. OMNISCAN [Suspect]
     Indication: ANGIOGRAM
     Dates: start: 20040927, end: 20040927
  3. UNSPECIFIED GADOLINIUM BASED CONTRAST AGENT [Suspect]
     Indication: NUCLEAR MAGNETIC RESONANCE IMAGING
     Dates: start: 19990622, end: 19990622
  4. UNSPECIFIED GADOLINIUM BASED CONTRAST AGENT [Suspect]
     Dates: start: 20040917, end: 20040917
  5. UNSPECIFIED GADOLINIUM BASED CONTRAST AGENT [Suspect]
     Dates: start: 20040226, end: 20040226
  6. UNSPECIFIED GADOLINIUM BASED CONTRAST AGENT [Suspect]
     Dates: start: 20001109, end: 20001109
  7. OPTIMARK [Suspect]
     Indication: DRUG USE FOR UNKNOWN INDICATION
  8. MULTIHANCE [Suspect]
     Indication: DRUG USE FOR UNKNOWN INDICATION
  9. PROHANCE [Suspect]
     Indication: DRUG USE FOR UNKNOWN INDICATION
  10. EPOGEN [Concomitant]
  11. HYDROCODONE BITARTRATE AND ACETAMINOPHEN [Concomitant]
     Indication: PAIN
  12. GABAPENTIN [Concomitant]
  13. PREVACID [Concomitant]
     Indication: GASTROOESOPHAGEAL REFLUX DISEASE
  14. SULFASALAZINE [Concomitant]
     Indication: CROHN'S DISEASE
  15. FLUCONAZOLE [Concomitant]
     Indication: INFECTION PROPHYLAXIS
  16. WARFARIN [Concomitant]
     Indication: ANTICOAGULANT THERAPY
  17. ADVAIR DISKUS 100/50 [Concomitant]
     Indication: RESPIRATORY DISORDER
  18. DIPHENHYDRAMINE [Concomitant]
     Indication: GASTROINTESTINAL STOMA COMPLICATION
  19. PROMETHAZINE [Concomitant]
     Indication: GASTROINTESTINAL STOMA COMPLICATION
     Route: 040
  20. AMBIEN [Concomitant]
  21. IRON SUPPLEMENTS [Concomitant]
  22. VITAMINS [Concomitant]

REACTIONS (10)
  - DYSSTASIA [None]
  - FIBROSIS [None]
  - GAIT DISTURBANCE [None]
  - GENERAL PHYSICAL HEALTH DETERIORATION [None]
  - NEPHROGENIC SYSTEMIC FIBROSIS [None]
  - PAIN IN EXTREMITY [None]
  - SKIN FIBROSIS [None]
  - SKIN INDURATION [None]
  - SKIN TIGHTNESS [None]
  - WOUND [None]
